FAERS Safety Report 4625845-4 (Version None)
Quarter: 2005Q1

REPORT INFORMATION
  Report Type: 
  Country: None (occurrence: None)
  Receive Date: 20050330
  Receipt Date: 20050322
  Transmission Date: 20050727
  Serious: Yes (Other)
  Sender: FDA-Public Use
  Company Number: SU-2005-003323

PATIENT
  Sex: Female

DRUGS (1)
  1. OLMETEC [Suspect]
     Indication: HYPERTENSION
     Dosage: 40 MG QD PO
     Route: 048
     Dates: start: 20050101, end: 20050321

REACTIONS (2)
  - BLOOD PRESSURE SYSTOLIC INCREASED [None]
  - DYSPEPSIA [None]
